FAERS Safety Report 4780555-8 (Version None)
Quarter: 2005Q3

REPORT INFORMATION
  Report Type: 
  Country: None (occurrence: None)
  Receive Date: 20050926
  Receipt Date: 20050915
  Transmission Date: 20060218
  Serious: Yes (Other)
  Sender: FDA-Public Use
  Company Number: 2005PV002139

PATIENT
  Age: 70 Year
  Sex: Female
  Weight: 63.05 kg

DRUGS (10)
  1. BYETTA [Suspect]
     Indication: DIABETES MELLITUS NON-INSULIN-DEPENDENT
     Dosage: SEE IMAGE
     Route: 058
     Dates: start: 20050801, end: 20050831
  2. BYETTA [Suspect]
     Indication: DIABETES MELLITUS NON-INSULIN-DEPENDENT
     Dosage: SEE IMAGE
     Route: 058
     Dates: start: 20050901
  3. SIMVASTTIN [Concomitant]
  4. PRINIVIL [Concomitant]
  5. ACTONEL [Concomitant]
  6. TOPROL-XL [Concomitant]
  7. GLUCOPHAGE ^BRISTOL-MYERS SQUIBE [Concomitant]
  8. ACTOS [Concomitant]
  9. VITAMIN D [Concomitant]
  10. CALCIUM GLUCONATE [Concomitant]

REACTIONS (4)
  - BLOOD GLUCOSE INCREASED [None]
  - CONVULSION [None]
  - FALL [None]
  - HEAD INJURY [None]
